FAERS Safety Report 6668706-1 (Version None)
Quarter: 2010Q2

REPORT INFORMATION
  Report Type: 
  Country: None (occurrence: None)
  Receive Date: 20100406
  Receipt Date: 20100323
  Transmission Date: 20101027
  Serious: Yes (Death, Other)
  Sender: FDA-Public Use
  Company Number: US-BAYER-200823830GPV

PATIENT
  Age: 48 Year
  Sex: Female

DRUGS (6)
  1. FLUDARABINE PHOSPHATE [Suspect]
     Indication: BONE MARROW CONDITIONING REGIMEN
     Dosage: TWO CYCLES IN STANDARD DOSES FOR 5 DAYS
     Route: 065
  2. FLUDARABINE PHOSPHATE [Suspect]
     Dosage: TWO CYCLES IN STANDARD DOSES FOR 5 DAYS
     Route: 065
  3. CYCLOPHOSPHAMIDE [Concomitant]
     Indication: BONE MARROW CONDITIONING REGIMEN
  4. CYCLOPHOSPHAMIDE [Concomitant]
  5. PROLEUKIN [Concomitant]
     Indication: BONE MARROW CONDITIONING REGIMEN
     Dosage: SYSTEMIC
  6. PROLEUKIN [Concomitant]
     Dosage: SYSTEMIC

REACTIONS (12)
  - BLINDNESS [None]
  - CEREBRAL ATROPHY [None]
  - HALLUCINATION [None]
  - HYPOAESTHESIA [None]
  - MALIGNANT MELANOMA [None]
  - MUSCULAR WEAKNESS [None]
  - NEUROTOXICITY [None]
  - OCULAR TOXICITY [None]
  - OPTIC ATROPHY [None]
  - VISUAL ACUITY REDUCED [None]
  - VISUAL IMPAIRMENT [None]
  - VITREOUS FLOATERS [None]
